FAERS Safety Report 5840665-0 (Version None)
Quarter: 2008Q3

REPORT INFORMATION
  Report Type: 
  Country: None (occurrence: None)
  Receive Date: 20080811
  Receipt Date: 20080804
  Transmission Date: 20090109
  Serious: Yes (Other)
  Sender: FDA-Public Use
  Company Number: PHHY2008BR16850

PATIENT
  Sex: Female
  Weight: 60 kg

DRUGS (1)
  1. PARLODEL [Suspect]
     Dosage: 2.5 MG (2 TABLETS EVERY 12 HOURS)
     Route: 048
     Dates: start: 20080601

REACTIONS (2)
  - DRUG EXPOSURE VIA BREAST MILK [None]
  - HYPOGLYCAEMIA [None]
